FAERS Safety Report 7370253-9 (Version None)
Quarter: 2011Q1

REPORT INFORMATION
  Report Type: 
  Country: None (occurrence: None)
  Receive Date: 20110323
  Receipt Date: 20110311
  Transmission Date: 20110831
  Serious: Yes (Other)
  Sender: FDA-Public Use
  Company Number: PHHO2011US04611

PATIENT
  Sex: Male
  Weight: 63.265 kg

DRUGS (7)
  1. OXYCONTIN [Concomitant]
  2. ZOMETA [Suspect]
     Indication: MULTIPLE MYELOMA
     Dosage: UNK
  3. CALTRATE [Concomitant]
  4. PERCOCET [Concomitant]
  5. ZOVIRAX [Concomitant]
  6. ZOCOR [Concomitant]
  7. PROVENTIL [Concomitant]

REACTIONS (1)
  - PNEUMONIA [None]
